FAERS Safety Report 4526956-4 (Version None)
Quarter: 2004Q4

REPORT INFORMATION
  Report Type: 
  Country: None (occurrence: None)
  Receive Date: 20041116
  Receipt Date: 20041025
  Transmission Date: 20050328
  Serious: No
  Sender: FDA-Public Use
  Company Number: 200410357BBE

PATIENT
  Sex: Female

DRUGS (1)
  1. BAYRHO-D [Suspect]
     Indication: RHESUS INCOMPATIBILITY
     Dosage: 300 UG, ONCE, INTRAMUSCULAR
     Route: 030
     Dates: start: 20041022

REACTIONS (6)
  - CHILLS [None]
  - HEADACHE [None]
  - HYPERHIDROSIS [None]
  - MUSCLE TIGHTNESS [None]
  - NAUSEA [None]
  - PAIN [None]
